FAERS Safety Report 5016982-3 (Version None)
Quarter: 2006Q2

REPORT INFORMATION
  Report Type: 
  Country: None (occurrence: None)
  Receive Date: 20060526
  Receipt Date: 20060518
  Transmission Date: 20061013
  Serious: Yes (Life-Threatening, Hospitalization)
  Sender: FDA-Public Use
  Company Number: 225303

PATIENT
  Age: 38 Year
  Sex: Male

DRUGS (11)
  1. AVASTIN [Suspect]
     Indication: COLORECTAL CANCER METASTATIC
     Dosage: 5 MG/KG, Q2W, INTRAVENOUS
     Route: 042
     Dates: start: 20060510, end: 20060510
  2. FLUOROURACIL [Suspect]
     Indication: COLORECTAL CANCER METASTATIC
     Dosage: 2400 MG/M2, Q2W, INTRAVENOUS
     Route: 042
     Dates: start: 20060510, end: 20060510
  3. OXALIPLATIN (OXALIPLATIN) [Suspect]
     Indication: COLORECTAL CANCER
     Dosage: 85 MG/M2, Q2W, INTRAVENOUS
     Route: 042
     Dates: start: 20060510, end: 20060510
  4. LEUCOVORIN CALCIUM [Suspect]
     Indication: COLORECTAL CANCER METASTATIC
     Dosage: 200 MG/M2, Q2W, INTRAVENOUS
     Route: 042
     Dates: start: 20060510, end: 20060510
  5. CALCIUM/MAGNESIUM OR PLACEBO (CALCIUM/MAGNESIUM OR PLACEBO) [Suspect]
     Indication: COLORECTAL CANCER METASTATIC
     Dosage: 1 UNIT, Q2W, INTRAVENOUS
     Route: 042
     Dates: start: 20060510, end: 20060510
  6. DEXAMETHASONE [Concomitant]
  7. GLYBURIDE [Concomitant]
  8. LORAZEPAM [Concomitant]
  9. COMPAZINE [Concomitant]
  10. DOLASETRON (DOLASETRON MESYLATE) [Concomitant]
  11. ACETAMINOPHEN [Concomitant]

REACTIONS (16)
  - ATELECTASIS [None]
  - BLOOD GLUCOSE INCREASED [None]
  - BLOOD POTASSIUM DECREASED [None]
  - BLOOD SODIUM DECREASED [None]
  - CARDIAC ARREST [None]
  - CONVULSION [None]
  - DYSPEPSIA [None]
  - ELECTROCARDIOGRAM ST SEGMENT ELEVATION [None]
  - FLUSHING [None]
  - HEADACHE [None]
  - NAUSEA [None]
  - PAIN [None]
  - PCO2 DECREASED [None]
  - PO2 INCREASED [None]
  - PULMONARY HYPERTENSION [None]
  - SYNCOPE [None]
